FAERS Safety Report 4620309-6 (Version None)
Quarter: 2005Q1

REPORT INFORMATION
  Report Type: 
  Country: None (occurrence: None)
  Receive Date: 20050324
  Receipt Date: 20050309
  Transmission Date: 20050727
  Serious: Yes (Hospitalization)
  Sender: FDA-Public Use
  Company Number: GBS050216627

PATIENT
  Sex: Female
  Weight: 66 kg

DRUGS (2)
  1. GEMCITABINE HYDROCHLORIDE-IV (GEMCITABINE) [Suspect]
     Indication: NON-SMALL CELL LUNG CANCER
     Dosage: 1976 MG/2 DAY
     Dates: start: 20050112, end: 20050202
  2. CARBOPLATIN [Concomitant]

REACTIONS (4)
  - CYANOSIS [None]
  - EXTREMITY NECROSIS [None]
  - PAIN IN EXTREMITY [None]
  - PERIPHERAL COLDNESS [None]
